FAERS Safety Report 18283241 (Version 3)
Quarter: 2020Q4

REPORT INFORMATION
  Report Type: Report from Study
  Country: US (occurrence: US)
  Receive Date: 20200918
  Receipt Date: 20201015
  Transmission Date: 20210113
  Serious: No
  Sender: FDA-Public Use
  Company Number: NVSC2020US253013

PATIENT
  Sex: Female

DRUGS (2)
  1. GILENYA [Suspect]
     Active Substance: FINGOLIMOD HYDROCHLORIDE
     Indication: MULTIPLE SCLEROSIS
     Dosage: 0.5 MG, QD
     Route: 048
     Dates: start: 201101
  2. TIZANIDINE. [Suspect]
     Active Substance: TIZANIDINE
     Indication: PRODUCT USED FOR UNKNOWN INDICATION
     Dosage: UNK, AT BEDTIME
     Route: 065

REACTIONS (10)
  - Muscle spasticity [Unknown]
  - Therapeutic product effect decreased [Unknown]
  - Muscular weakness [Unknown]
  - Balance disorder [Unknown]
  - Back pain [Unknown]
  - Pain in extremity [Unknown]
  - Peripheral coldness [Unknown]
  - Cognitive disorder [Unknown]
  - Fatigue [Unknown]
  - Muscle spasms [Unknown]
